FAERS Safety Report 6816057-4 (Version None)
Quarter: 2010Q3

REPORT INFORMATION
  Report Type: 
  Country: None (occurrence: None)
  Receive Date: 20100705
  Receipt Date: 20100622
  Transmission Date: 20110219
  Serious: No
  Sender: FDA-Public Use
  Company Number: US-BIOGENIDEC-2010BI020895

PATIENT
  Sex: Female

DRUGS (1)
  1. AVONEX [Suspect]
     Indication: MULTIPLE SCLEROSIS
     Route: 030
     Dates: start: 20100422

REACTIONS (5)
  - DRY MOUTH [None]
  - FALL [None]
  - HEADACHE [None]
  - HYPOAESTHESIA [None]
  - NOCTURIA [None]
